FAERS Safety Report 13357438 (Version 3)
Quarter: 2017Q4

REPORT INFORMATION
  Report Type: Report from Study
  Country: None (occurrence: US)
  Receive Date: 20170322
  Receipt Date: 20171204
  Transmission Date: 20180320
  Serious: Yes (Other)
  Sender: FDA-Public Use
  Company Number: US-ABBVIE-17K-163-1910083-00

PATIENT
  Sex: Male

DRUGS (3)
  1. HUMIRA [Suspect]
     Active Substance: ADALIMUMAB
     Indication: CROHN^S DISEASE
     Route: 058
  2. METHOTREXATE. [Suspect]
     Active Substance: METHOTREXATE
     Indication: PRODUCT USED FOR UNKNOWN INDICATION
     Route: 065
  3. METHOTREXATE. [Suspect]
     Active Substance: METHOTREXATE
     Route: 065

REACTIONS (11)
  - Abscess intestinal [Unknown]
  - Injection site pain [Unknown]
  - Postoperative wound infection [Recovering/Resolving]
  - Wound [Unknown]
  - Gastrointestinal pain [Unknown]
  - Gastrointestinal fistula [Unknown]
  - Weight decreased [Unknown]
  - Drug clearance increased [Unknown]
  - Surgical failure [Unknown]
  - Crohn^s disease [Unknown]
  - Urticaria [Unknown]
